FAERS Safety Report 12480283 (Version 1)
Quarter: 2016Q2

REPORT INFORMATION
  Report Type: Spontaneous
  Country: IT (occurrence: IT)
  Receive Date: 20160620
  Receipt Date: 20160620
  Transmission Date: 20160815
  Serious: Yes (Other)
  Sender: FDA-Public Use
  Company Number: IT-AUROBINDO-AUR-APL-2016-08005

PATIENT
  Age: 40 Year
  Sex: Male

DRUGS (1)
  1. QUETIAPINE TABLETS 200MG [Suspect]
     Active Substance: QUETIAPINE
     Indication: PRODUCT USED FOR UNKNOWN INDICATION
     Dosage: 400 MG,TOTAL
     Route: 048
     Dates: start: 20160424, end: 20160424

REACTIONS (2)
  - Sopor [Recovering/Resolving]
  - Medication error [Recovering/Resolving]

NARRATIVE: CASE EVENT DATE: 20160424
